FAERS Safety Report 9596295 (Version 2)
Quarter: 2013Q4

REPORT INFORMATION
  Report Type: Spontaneous
  Country: FR (occurrence: FR)
  Receive Date: 20131004
  Receipt Date: 20131219
  Transmission Date: 20140711
  Serious: Yes (Hospitalization)
  Sender: FDA-Public Use
  Company Number: FR-SA-2013SA097675

PATIENT
  Age: 91 Year
  Sex: Female

DRUGS (14)
  1. LOVENOX [Suspect]
     Indication: PRODUCT USED FOR UNKNOWN INDICATION
     Route: 048
     Dates: start: 20130906
  2. FLAGYL [Suspect]
     Indication: PYELONEPHRITIS
     Route: 048
     Dates: start: 20130905, end: 20130910
  3. CEFTRIAXONE SODIUM [Concomitant]
     Dates: start: 20130902
  4. APROVEL [Concomitant]
     Route: 048
  5. CORDIPATCH [Concomitant]
  6. TOCO [Concomitant]
     Route: 048
  7. TEMERIT [Concomitant]
  8. PREVISCAN [Concomitant]
     Dosage: 0.5 DF DAILY 6 DAYS?0.25 DF DAILY 1 DAY
     Route: 048
  9. PRAZEPAM [Concomitant]
  10. SERTRALINE [Concomitant]
  11. LEVOTHYROX [Concomitant]
  12. CONTALAX [Concomitant]
  13. AUGMENTIN [Concomitant]
  14. ROCEPHINE [Concomitant]
     Dates: end: 20130910

REACTIONS (1)
  - White blood cell count decreased [Recovered/Resolved]
